FAERS Safety Report 8783330 (Version 2)
Quarter: 2012Q4

REPORT INFORMATION
  Report Type: 
  Country: US (occurrence: US)
  Receive Date: 20120913
  Receipt Date: 20121008
  Transmission Date: 20130627
  Serious: Yes (Other)
  Sender: FDA-Public Use
  Company Number: US-ASTRAZENECA-2012SE69275

PATIENT
  Age: 56 Year
  Sex: Female

DRUGS (8)
  1. LISINOPRIL [Suspect]
     Route: 048
  2. CAPRELSA [Suspect]
     Route: 048
     Dates: start: 20120720
  3. CAPRELSA [Suspect]
     Route: 048
     Dates: start: 20120815
  4. FOLIC ACID [Concomitant]
  5. KEPPRA [Concomitant]
  6. LYRICA [Concomitant]
  7. SYNTHROID [Concomitant]
  8. VITAMIN D [Concomitant]

REACTIONS (5)
  - Convulsion [Unknown]
  - Migraine [Unknown]
  - Chest discomfort [Unknown]
  - Blood pressure increased [Unknown]
  - Cough [Unknown]
